FAERS Safety Report 6865989-X (Version None)
Quarter: 2010Q3

REPORT INFORMATION
  Report Type: 
  Country: None (occurrence: None)
  Receive Date: 20100719
  Receipt Date: 20100616
  Transmission Date: 20110219
  Serious: No
  Sender: FDA-Public Use
  Company Number: 2010EU002948

PATIENT
  Age: 60 Year
  Sex: Male
  Weight: 118 kg

DRUGS (1)
  1. MYCAMINE [Suspect]
     Indication: PROPHYLAXIS
     Dosage: 50 MG, IV NOS
     Route: 042
     Dates: start: 20100120, end: 20100201

REACTIONS (5)
  - BLOOD CREATININE INCREASED [None]
  - CANDIDIASIS [None]
  - CULTURE POSITIVE [None]
  - GAMMA-GLUTAMYLTRANSFERASE INCREASED [None]
  - PYREXIA [None]
